FAERS Safety Report 9085234 (Version 1)
Quarter: 2013Q1

REPORT INFORMATION
  Report Type: Report from Study
  Country: US (occurrence: US)
  Receive Date: 20130131
  Receipt Date: 20130131
  Transmission Date: 20140127
  Serious: No
  Sender: FDA-Public Use
  Company Number: US-ABBOTT-12P-163-0989263-00

PATIENT
  Age: 51 Year
  Sex: Female
  Weight: 79.45 kg

DRUGS (5)
  1. HUMIRA [Suspect]
     Indication: RHEUMATOID ARTHRITIS
     Dates: start: 201207
  2. METHOTREXATE (NON-ABBOTT) [Concomitant]
     Indication: RHEUMATOID ARTHRITIS
  3. NASAL SPRAY (NON-ABBOTT) [Concomitant]
     Indication: HYPERSENSITIVITY
  4. NORCO [Concomitant]
     Indication: BACK PAIN
  5. FOLIC ACID [Concomitant]
     Indication: VITAMIN SUPPLEMENTATION

REACTIONS (3)
  - Pain [Not Recovered/Not Resolved]
  - Injection site pain [Not Recovered/Not Resolved]
  - Back pain [Not Recovered/Not Resolved]
